FAERS Safety Report 16260941 (Version 1)
Quarter: 2019Q2

REPORT INFORMATION
  Report Type: Other
  Country: GB (occurrence: GB)
  Receive Date: 20190501
  Receipt Date: 20190501
  Transmission Date: 20190711
  Serious: Yes (Other)
  Sender: FDA-Public Use
  Company Number: GB-HERITAGE PHARMACEUTICALS-2019HTG00178

PATIENT
  Age: 77 Year
  Sex: Female
  Weight: 50 kg

DRUGS (8)
  1. RAMIPRIL. [Concomitant]
     Active Substance: RAMIPRIL
     Dosage: 1 DOSAGE UNITS, 1X/DAY
     Dates: start: 20180716
  2. ESOMEPRAZOLE. [Concomitant]
     Active Substance: ESOMEPRAZOLE MAGNESIUM
     Dosage: 1 DOSAGE UNITS, 1X/DAY
     Dates: start: 20180716
  3. ASPIRIN. [Concomitant]
     Active Substance: ASPIRIN
     Dosage: 1 DOSAGE UNITS, 1X/DAY
     Dates: start: 20180716
  4. MONOMIL XL [Concomitant]
     Active Substance: ISOSORBIDE MONONITRATE
     Dosage: 1 DOSAGE UNITS, 1X/DAY IN THE MORNING
     Dates: start: 20180716
  5. NIFEDIPINE. [Suspect]
     Active Substance: NIFEDIPINE
     Dosage: 10 MG
     Dates: start: 20190319
  6. EZETIMIBE. [Concomitant]
     Active Substance: EZETIMIBE
     Dosage: 1 DOSAGE UNITS, 1X/DAY AT NIGHT
     Dates: start: 20180716
  7. RANITIDINE. [Concomitant]
     Active Substance: RANITIDINE
     Dosage: 1 DOSAGE UNITS, 1X/DAY AT NIGHT
     Dates: start: 20180716
  8. SIMVASTATIN. [Concomitant]
     Active Substance: SIMVASTATIN
     Dosage: 1 DOSAGE UNITS, 1X/DAY AT NIGHT
     Dates: start: 20180716

REACTIONS (3)
  - Hypotension [Recovering/Resolving]
  - Tachycardia [Recovering/Resolving]
  - Postural tremor [Recovering/Resolving]

NARRATIVE: CASE EVENT DATE: 20190320
